FAERS Safety Report 8760826 (Version 4)
Quarter: 2013Q3

REPORT INFORMATION
  Report Type: Report from Study
  Country: JP (occurrence: JP)
  Receive Date: 20120830
  Receipt Date: 20130919
  Transmission Date: 20140515
  Serious: Yes (Other)
  Sender: FDA-Public Use
  Company Number: JP-JNJFOC-20120813156

PATIENT
  Age: 6 Decade
  Sex: Male

DRUGS (5)
  1. PREZISTA [Suspect]
     Indication: HIV INFECTION
     Route: 048
     Dates: start: 20110412
  2. RITONAVIR [Concomitant]
     Indication: HIV INFECTION
     Route: 048
     Dates: start: 20110517
  3. RITONAVIR [Concomitant]
     Indication: HIV INFECTION
     Route: 048
     Dates: start: 20110412, end: 20110516
  4. LAMIVUDINE ABACAVIR SULFATE [Concomitant]
     Indication: HIV INFECTION
     Route: 048
     Dates: start: 20110412
  5. ALLELOCK [Concomitant]
     Indication: RHINITIS ALLERGIC
     Dates: start: 20110412, end: 20110606

REACTIONS (2)
  - Renal disorder [Not Recovered/Not Resolved]
  - Lipid metabolism disorder [Not Recovered/Not Resolved]
